FAERS Safety Report 8008924-3 (Version None)
Quarter: 2011Q4

REPORT INFORMATION
  Report Type: 
  Country: None (occurrence: None)
  Receive Date: 20111227
  Receipt Date: 20111222
  Transmission Date: 20120403
  Serious: Yes (Death)
  Sender: FDA-Public Use
  Company Number: US-PFIZER INC-2011199315

PATIENT
  Sex: Female

DRUGS (9)
  1. SUTENT [Suspect]
     Indication: RENAL CANCER
     Dosage: 25 MG, 1X/DAY (ONE CAPSULE BY MOUTH DAILY FOR 14 DAYS ON FOLLOWED BY 7 DAYS OFF)
     Route: 048
     Dates: start: 20110506
  2. GEMZAR [Concomitant]
     Dosage: 1 G, UNK
  3. IPRATROPIUM [Concomitant]
     Dosage: UNK
  4. SUTENT [Suspect]
     Dosage: 50 MG, 1X/DAY (FOR 7 DAYS ON FOLLOWED BY 7 DAYS OFF)
     Route: 048
     Dates: start: 20111118
  5. OMEPRAZOLE [Concomitant]
     Dosage: 40 MG, UNK
  6. RELPAX [Concomitant]
     Dosage: 40 MG, UNK
  7. LEVOTHYROXINE [Concomitant]
     Dosage: 25 UG, UNK
  8. ONDANSETRON [Concomitant]
     Dosage: 4 MG, UNK
  9. PROAIR HFA [Concomitant]
     Dosage: UNK

REACTIONS (20)
  - DYSGEUSIA [None]
  - THYROID DISORDER [None]
  - ALOPECIA [None]
  - DYSPNOEA [None]
  - CHEST DISCOMFORT [None]
  - SKIN FISSURES [None]
  - NAUSEA [None]
  - CONSTIPATION [None]
  - DECREASED APPETITE [None]
  - PALPITATIONS [None]
  - PAIN [None]
  - FATIGUE [None]
  - RHINORRHOEA [None]
  - WEIGHT DECREASED [None]
  - DIZZINESS [None]
  - NASAL DISORDER [None]
  - SKIN LESION [None]
  - DEATH [None]
  - DIARRHOEA [None]
  - MOUTH ULCERATION [None]
